FAERS Safety Report 26001234 (Version 1)
Quarter: 2025Q4

REPORT INFORMATION
  Report Type: Report from Study
  Country: AE (occurrence: AE)
  Receive Date: 20251105
  Receipt Date: 20251105
  Transmission Date: 20260118
  Serious: Yes (Hospitalization, Other)
  Sender: GILEAD
  Company Number: AE-GILEAD-2025-0733746

PATIENT
  Age: 57 Year
  Sex: Female

DRUGS (1)
  1. SACITUZUMAB GOVITECAN-HZIY [Suspect]
     Active Substance: SACITUZUMAB GOVITECAN-HZIY
     Indication: Triple negative breast cancer
     Dosage: 510 MG
     Route: 042
     Dates: start: 202508, end: 20250923

REACTIONS (3)
  - Influenza [Recovering/Resolving]
  - Disease progression [Unknown]
  - Drug ineffective [Unknown]
